FAERS Safety Report 8591347-6 (Version None)
Quarter: 2012Q3

REPORT INFORMATION
  Report Type: 
  Country: None (occurrence: None)
  Receive Date: 20120814
  Receipt Date: 20120803
  Transmission Date: 20120928
  Serious: Yes (Hospitalization)
  Sender: FDA-Public Use
  Company Number: DK-ACCORD-014383

PATIENT
  Age: 87 Year
  Sex: Female

DRUGS (13)
  1. VALPROATE SODIUM [Suspect]
     Indication: EPILEPSY
     Dosage: STYRKE: 300 MG
     Route: 048
     Dates: start: 20091001, end: 20120725
  2. ACETAMINOPHEN [Concomitant]
     Indication: PAIN
  3. SIMVASTATIN [Concomitant]
     Indication: HYPERCHOLESTEROLAEMIA
  4. SELEXID [Concomitant]
     Indication: CYSTITIS
     Dates: start: 20120719, end: 20120725
  5. SPIRIVA [Concomitant]
     Indication: CHRONIC OBSTRUCTIVE PULMONARY DISEASE
  6. CLOPIDOGREL [Concomitant]
  7. SEREVENT [Concomitant]
     Indication: CHRONIC OBSTRUCTIVE PULMONARY DISEASE
  8. LEVETIRACETAM [Suspect]
     Indication: EPILEPSY
     Route: 048
     Dates: start: 20091001, end: 20120725
  9. POTASSIUM CHLORIDE [Concomitant]
  10. CETIRIZINE HCL [Concomitant]
  11. BONIVA [Concomitant]
     Indication: OSTEOPOROSIS
  12. PANTOPRAZOLE [Concomitant]
     Indication: GASTRIC ULCER
  13. TRIMOPAN [Concomitant]

REACTIONS (3)
  - DYSPNOEA [None]
  - TREMOR [None]
  - ABDOMINAL PAIN [None]
